FAERS Safety Report 5334876-0 (Version None)
Quarter: 2007Q2

REPORT INFORMATION
  Report Type: 
  Country: None (occurrence: None)
  Receive Date: 20070525
  Receipt Date: 20070516
  Transmission Date: 20071010
  Serious: Yes (Life-Threatening, Other)
  Sender: FDA-Public Use
  Company Number: IT-ASTRAZENECA-2007SE01547

PATIENT
  Age: 16201 Day
  Sex: Female

DRUGS (1)
  1. MARCAINA HYPERBARIC 1% [Suspect]
     Indication: ANAESTHESIA
     Dosage: 1 %
     Route: 037
     Dates: start: 20070316, end: 20070316

REACTIONS (1)
  - NO THERAPEUTIC RESPONSE [None]
